FAERS Safety Report 23779243 (Version 1)
Quarter: 2024Q2

REPORT INFORMATION
  Report Type: Spontaneous
  Country: CN (occurrence: CN)
  Receive Date: 20240424
  Receipt Date: 20240424
  Transmission Date: 20240716
  Serious: Yes (Other)
  Sender: FDA-Public Use
  Company Number: CN-NAPPMUNDI-GBR-2024-0115900

PATIENT
  Age: 43 Year
  Sex: Female
  Weight: 56 kg

DRUGS (6)
  1. BUPRENORPHINE [Suspect]
     Active Substance: BUPRENORPHINE
     Indication: Analgesic therapy
     Dosage: 5 MILLIGRAM, WEEKLY
     Route: 062
     Dates: start: 20240320, end: 20240321
  2. SODIUM ESCINATE [Suspect]
     Active Substance: SODIUM ESCINATE
     Indication: Swelling
     Dosage: 7.5 MILLIGRAM, DAILY
     Route: 041
     Dates: start: 20240319, end: 20240321
  3. SODIUM ESCINATE [Suspect]
     Active Substance: SODIUM ESCINATE
     Indication: Polyuria
     Dosage: 300 MILLILITER
     Route: 041
     Dates: start: 20240321
  4. SODIUM CHLORIDE [Suspect]
     Active Substance: SODIUM CHLORIDE
     Indication: Dehydration
     Dosage: 500 MILLILITER, DAILY
     Route: 042
     Dates: start: 20240319
  5. SODIUM CHLORIDE [Suspect]
     Active Substance: SODIUM CHLORIDE
     Indication: Swelling
  6. SODIUM CHLORIDE [Concomitant]
     Active Substance: SODIUM CHLORIDE
     Indication: Vehicle solution use
     Dosage: 500 MILLILITER, DAILY
     Route: 041
     Dates: start: 20240319, end: 20240321

REACTIONS (5)
  - Dizziness [Recovered/Resolved]
  - Pallor [Recovered/Resolved]
  - Chest discomfort [Recovered/Resolved]
  - Palpitations [Recovered/Resolved]
  - Hyperhidrosis [Recovered/Resolved]

NARRATIVE: CASE EVENT DATE: 20240321
